FAERS Safety Report 16039020 (Version 1)
Quarter: 2019Q1

REPORT INFORMATION
  Report Type: Report from Study
  Country: US (occurrence: US)
  Receive Date: 20190306
  Receipt Date: 20190306
  Transmission Date: 20190418
  Serious: Yes (Hospitalization)
  Sender: FDA-Public Use
  Company Number: US-ROCHE-2273240

PATIENT
  Age: 34 Year
  Sex: Female
  Weight: 65.83 kg

DRUGS (1)
  1. OCREVUS [Suspect]
     Active Substance: OCRELIZUMAB
     Indication: RELAPSING-REMITTING MULTIPLE SCLEROSIS
     Dosage: ONGOING:UNKNOWN?NEXT INFUSION ON 31/AUG/2018
     Route: 065
     Dates: start: 20180817

REACTIONS (4)
  - Vomiting [Recovered/Resolved]
  - Loss of consciousness [Unknown]
  - Gait disturbance [Not Recovered/Not Resolved]
  - Gastric infection [Recovered/Resolved]

NARRATIVE: CASE EVENT DATE: 20190223
